FAERS Safety Report 4717586-X (Version None)
Quarter: 2005Q3

REPORT INFORMATION
  Report Type: 
  Country: None (occurrence: None)
  Receive Date: 20050712
  Receipt Date: 20050329
  Transmission Date: 20060218
  Serious: No
  Sender: FDA-Public Use
  Company Number: 2005S1000118

PATIENT
  Age: 65 Year
  Sex: Female

DRUGS (38)
  1. CUBICIN [Suspect]
     Indication: BACTERAEMIA
     Dosage: 350 MG;Q48H;IV
     Route: 042
     Dates: start: 20040817
  2. ALBUMIN (HUMAN) [Concomitant]
  3. HYDROMORPHONE HCL [Concomitant]
  4. MAGNESIUM SULFATE [Concomitant]
  5. METOPROLOL [Concomitant]
  6. NOREPINEPHRINE [Concomitant]
  7. ONDANSETRON [Concomitant]
  8. SODIUM POLYSTYRENE [Concomitant]
  9. ACTIVASE [Concomitant]
  10. CEFEPIME [Concomitant]
  11. CHLORHEXIDINE [Concomitant]
  12. DARBEPOETIN ALFA [Concomitant]
  13. DIGOXIN [Concomitant]
  14. FAT EMULSIONS [Concomitant]
  15. FLUCONAZOLE [Concomitant]
  16. FRAGMIN [Concomitant]
  17. GRANULOCYTE COLONY STIMULATING FACTOR [Concomitant]
  18. GLUCAGON [Concomitant]
  19. INSULIN [Concomitant]
  20. NPH INSULIN [Concomitant]
  21. LACRI-LUBE [Concomitant]
  22. LACTULOSE [Concomitant]
  23. LANSOPRAZOLE [Concomitant]
  24. LEVOFLOXACIN [Concomitant]
  25. LINEZOLID [Concomitant]
  26. METOCLOPRAMIDE [Concomitant]
  27. METRONIDAZOLE [Concomitant]
  28. MIRTAZAPINE [Concomitant]
  29. NEOMYCIN [Concomitant]
  30. NYSTATIN [Concomitant]
  31. POTASSIUM PHOSPHATES [Concomitant]
  32. PREDNISONE [Concomitant]
  33. PROPOFOL [Concomitant]
  34. SODIUM BICARBONATE [Concomitant]
  35. SODIUM PHOSPHATE [Concomitant]
  36. URSODIOL [Concomitant]
  37. VECURONIUM [Concomitant]
  38. ZOLPIDEM [Concomitant]

REACTIONS (1)
  - INTERNATIONAL NORMALISED RATIO INCREASED [None]
